FAERS Safety Report 9992944 (Version 1)
Quarter: 2014Q1

REPORT INFORMATION
  Report Type: Report from Study
  Country: US (occurrence: US)
  Receive Date: 20140310
  Receipt Date: 20140310
  Transmission Date: 20141002
  Serious: No
  Sender: FDA-Public Use
  Company Number: US-ABBVIE-13P-163-1108643-00

PATIENT
  Age: 42 Year
  Sex: Female
  Weight: 106.24 kg

DRUGS (5)
  1. LUPRON DEPOT [Suspect]
     Indication: OVARIAN CYST
     Dates: start: 20130201
  2. LUPRON DEPOT [Suspect]
     Indication: ENDOMETRIOSIS
     Dates: start: 201305
  3. ZYRTEC [Concomitant]
     Indication: PRODUCT USED FOR UNKNOWN INDICATION
  4. GABAPENTIN [Concomitant]
     Indication: PRODUCT USED FOR UNKNOWN INDICATION
  5. CYMBALTA [Concomitant]
     Indication: PRODUCT USED FOR UNKNOWN INDICATION

REACTIONS (9)
  - Ovarian cyst ruptured [Recovered/Resolved]
  - Fatigue [Recovered/Resolved]
  - Pain [Recovered/Resolved]
  - Hot flush [Recovered/Resolved]
  - Off label use [Unknown]
  - Pelvic pain [Recovered/Resolved]
  - Chills [Recovered/Resolved]
  - Ovarian disorder [Unknown]
  - Drug intolerance [Unknown]
